FAERS Safety Report 13176958 (Version 1)
Quarter: 2017Q1

REPORT INFORMATION
  Report Type: Report from Study
  Country: US (occurrence: US)
  Receive Date: 20170201
  Receipt Date: 20170201
  Transmission Date: 20170428
  Serious: No
  Sender: FDA-Public Use
  Company Number: US-EXELIXIS-CABO-16006757

PATIENT
  Sex: Male

DRUGS (6)
  1. COMETRIQ [Suspect]
     Active Substance: CABOZANTINIB S-MALATE
     Indication: THYROID CANCER
     Dosage: 100 MG, QD
     Route: 048
     Dates: start: 20160317
  2. SYNTHROID [Concomitant]
     Active Substance: LEVOTHYROXINE SODIUM
  3. FENTANYL. [Concomitant]
     Active Substance: FENTANYL
  4. HYDROMORPHONE [Concomitant]
     Active Substance: HYDROMORPHONE
  5. CALTRATE [Concomitant]
     Active Substance: CALCIUM CARBONATE
  6. METOPROLOL. [Concomitant]
     Active Substance: METOPROLOL

REACTIONS (7)
  - Nodule [Unknown]
  - Throat tightness [Unknown]
  - Odynophagia [Unknown]
  - Bedridden [Unknown]
  - Chest pain [Unknown]
  - Weight decreased [Not Recovered/Not Resolved]
  - Skin ulcer [Recovering/Resolving]
